FAERS Safety Report 9286569 (Version 3)
Quarter: 2014Q1

REPORT INFORMATION
  Report Type: Spontaneous
  Country: GB (occurrence: GB)
  Receive Date: 20130513
  Receipt Date: 20140219
  Transmission Date: 20141002
  Serious: Yes (Death)
  Sender: FDA-Public Use
  Company Number: GB-ACTAVIS-2013-08028

PATIENT
  Age: 52 Year
  Sex: Female

DRUGS (5)
  1. DOCETAXEL (UNKNOWN) [Suspect]
     Indication: BREAST CANCER
     Dosage: 160 MG, 1/ THREE WEEKS
     Route: 042
     Dates: start: 20130226, end: 20130404
  2. PERTUZUMAB [Concomitant]
     Indication: BREAST CANCER
     Dosage: 420 MG, 1/ THREE WEEKS
     Route: 042
     Dates: start: 20130319, end: 20130404
  3. PERTUZUMAB [Concomitant]
     Dosage: 840 MG, TOTAL
     Route: 042
     Dates: start: 20130226, end: 20130226
  4. PERTUZUMAB [Concomitant]
     Dosage: 420 MG, 1/ THREE WEEKS
     Route: 042
  5. TRASTUZUMAB [Concomitant]
     Indication: BREAST CANCER
     Dosage: 441 MG, 1/ THREE WEEKS
     Route: 042
     Dates: start: 20130226

REACTIONS (4)
  - Sepsis [Fatal]
  - Vomiting [Unknown]
  - Back pain [Unknown]
  - Abdominal pain [Unknown]
